FAERS Safety Report 6148487-0 (Version None)
Quarter: 2009Q2

REPORT INFORMATION
  Report Type: 
  Country: None (occurrence: None)
  Receive Date: 20090408
  Receipt Date: 20090330
  Transmission Date: 20091009
  Serious: Yes (Other)
  Sender: FDA-Public Use
  Company Number: PHHY2009BR12469

PATIENT
  Sex: Male
  Weight: 95 kg

DRUGS (4)
  1. DIOVAN [Suspect]
     Indication: HYPERTENSION
     Dosage: 1 TABLET IN THE MORNING
     Dates: start: 20090315
  2. ARADOIS [Suspect]
     Dosage: 1 TABLET(50 MG) AT NIGHT
     Dates: start: 20090315
  3. ARADOIS [Suspect]
     Dosage: 1 TABLET (100 MG) A DAY
  4. HUMAN INSULIN LOLIN NPH [Concomitant]
     Indication: DIABETES MELLITUS
     Dosage: 35 UI/ DAY, APPLIED ON THE LEG OR BELLY REGIONS

REACTIONS (4)
  - BLOOD PRESSURE INCREASED [None]
  - DRY EYE [None]
  - VISION BLURRED [None]
  - VISUAL IMPAIRMENT [None]
